FAERS Safety Report 22925842 (Version 2)
Quarter: 2023Q4

REPORT INFORMATION
  Report Type: Spontaneous
  Country: US (occurrence: US)
  Receive Date: 20230908
  Receipt Date: 20231011
  Transmission Date: 20240110
  Serious: Yes (Other)
  Sender: FDA-Public Use
  Company Number: US-GSKCCFUS-Case-01795465_AE-100644

PATIENT

DRUGS (2)
  1. JEMPERLI [Suspect]
     Active Substance: DOSTARLIMAB-GXLY
     Indication: Endometrial cancer stage IV
     Dosage: 500 MG, Q3W, FOR 4 DOSES
     Route: 042
     Dates: start: 20230706
  2. JEMPERLI [Suspect]
     Active Substance: DOSTARLIMAB-GXLY
     Dosage: 1000 NG, Q6W
     Route: 042

REACTIONS (18)
  - Sepsis [Unknown]
  - Dizziness [Not Recovered/Not Resolved]
  - Decreased appetite [Not Recovered/Not Resolved]
  - Weight decreased [Not Recovered/Not Resolved]
  - Fatigue [Not Recovered/Not Resolved]
  - Abdominal pain [Unknown]
  - Bone pain [Unknown]
  - Pyrexia [Recovered/Resolved]
  - Colitis [Not Recovered/Not Resolved]
  - White blood cell count increased [Not Recovered/Not Resolved]
  - Vaginal haemorrhage [Not Recovered/Not Resolved]
  - Diarrhoea [Not Recovered/Not Resolved]
  - Rash pruritic [Not Recovered/Not Resolved]
  - Melanocytic naevus [Not Recovered/Not Resolved]
  - Condition aggravated [Not Recovered/Not Resolved]
  - Emphysema [Unknown]
  - Neoplasm progression [Unknown]
  - Therapeutic response unexpected [Unknown]

NARRATIVE: CASE EVENT DATE: 20230828
